FAERS Safety Report 6422003-8 (Version None)
Quarter: 2009Q4

REPORT INFORMATION
  Report Type: 
  Country: None (occurrence: None)
  Receive Date: 20091030
  Receipt Date: 20091019
  Transmission Date: 20100525
  Serious: Yes (Other)
  Sender: FDA-Public Use
  Company Number: BE-ELI_LILLY_AND_COMPANY-BE200907000823

PATIENT
  Sex: Female

DRUGS (1)
  1. CYMBALTA [Suspect]
     Indication: FIBROMYALGIA
     Dosage: 60 MG, DAILY (1/D)
     Route: 065
     Dates: start: 20070127, end: 20070401

REACTIONS (4)
  - DECREASED APPETITE [None]
  - HEPATITIS [None]
  - HYPERHIDROSIS [None]
  - WEIGHT DECREASED [None]
